FAERS Safety Report 7889117-7 (Version None)
Quarter: 2011Q4

REPORT INFORMATION
  Report Type: 
  Country: None (occurrence: None)
  Receive Date: 20111103
  Receipt Date: 20111025
  Transmission Date: 20120403
  Serious: Yes (Other)
  Sender: FDA-Public Use
  Company Number: JP-BRISTOL-MYERS SQUIBB COMPANY-16136533

PATIENT
  Age: 28 Year
  Sex: Female
  Weight: 57 kg

DRUGS (6)
  1. CISPLATIN [Suspect]
     Indication: OVARIAN NEOPLASM
     Route: 042
     Dates: start: 20100510, end: 20100813
  2. BLEO [Suspect]
     Indication: TERATOMA
     Dates: start: 20100511, end: 20100810
  3. CISPLATIN [Suspect]
     Indication: TERATOMA
     Route: 042
     Dates: start: 20100510, end: 20100813
  4. VEPESID [Suspect]
     Indication: OVARIAN NEOPLASM
     Route: 042
     Dates: start: 20100510, end: 20100813
  5. VEPESID [Suspect]
     Indication: TERATOMA
     Route: 042
     Dates: start: 20100510, end: 20100813
  6. BLEO [Suspect]
     Indication: OVARIAN NEOPLASM
     Dates: start: 20100511, end: 20100810

REACTIONS (6)
  - LIVE BIRTH [None]
  - CAESAREAN SECTION [None]
  - PREMATURE DELIVERY [None]
  - NEUTROPHIL COUNT DECREASED [None]
  - MATERNAL EXPOSURE DURING PREGNANCY [None]
  - PREGNANCY [None]
